FAERS Safety Report 20775873 (Version 1)
Quarter: 2022Q2

REPORT INFORMATION
  Report Type: Spontaneous
  Country: JP (occurrence: JP)
  Receive Date: 20220502
  Receipt Date: 20220502
  Transmission Date: 20220721
  Serious: Yes (Life-Threatening)
  Sender: FDA-Public Use
  Company Number: JP-EXELA PHARMA SCIENCES, LLC-2022EXL00011

PATIENT
  Age: 77 Year
  Sex: Male
  Weight: 52 kg

DRUGS (9)
  1. PHENYLEPHRINE [Suspect]
     Active Substance: PHENYLEPHRINE HYDROCHLORIDE
     Indication: Carotid endarterectomy
     Dosage: UP TO 0.5 ?G/KG/MIN
     Route: 042
  2. BISOPROLOL FUMARATE [Concomitant]
     Active Substance: BISOPROLOL FUMARATE
     Dosage: 0.625 MG, 1X/DAY
     Route: 065
  3. NIFEDIPINE [Concomitant]
     Active Substance: NIFEDIPINE
     Dosage: 20 MG, 1X/DAY
     Route: 065
  4. EDOXABAN TOSYLATE [Concomitant]
     Active Substance: EDOXABAN TOSYLATE
     Dosage: 30 MG, 1X/DAY
     Route: 065
  5. PROPOFOL [Concomitant]
     Active Substance: PROPOFOL
     Indication: Carotid endarterectomy
     Route: 065
  6. FENTANYL [Concomitant]
     Active Substance: FENTANYL
     Indication: Carotid endarterectomy
     Route: 065
  7. ROCURONIUM [Concomitant]
     Active Substance: ROCURONIUM BROMIDE
     Indication: Carotid endarterectomy
     Route: 065
  8. REMIFENTANIL [Concomitant]
     Active Substance: REMIFENTANIL
     Indication: Carotid endarterectomy
     Route: 065
  9. DESFLURANE [Concomitant]
     Active Substance: DESFLURANE
     Indication: Carotid endarterectomy
     Route: 065

REACTIONS (1)
  - Ventricular fibrillation [Recovered/Resolved]
